FAERS Safety Report 16247211 (Version 2)
Quarter: 2019Q2

REPORT INFORMATION
  Report Type: Spontaneous
  Country: US (occurrence: US)
  Receive Date: 20190427
  Receipt Date: 20190511
  Transmission Date: 20190711
  Serious: No
  Sender: FDA-Public Use
  Company Number: US-009507513-1904USA012078

PATIENT
  Sex: Female

DRUGS (1)
  1. NEXPLANON [Suspect]
     Active Substance: ETONOGESTREL
     Indication: CONTRACEPTION
     Dosage: 1 DOSAGE FORM (3 YEARS) IN LEFT ARM
     Route: 059
     Dates: start: 2016

REACTIONS (5)
  - Oligomenorrhoea [Not Recovered/Not Resolved]
  - Vaginal discharge [Not Recovered/Not Resolved]
  - Adverse event [Not Recovered/Not Resolved]
  - Pollakiuria [Not Recovered/Not Resolved]
  - Incorrect product administration duration [Unknown]
